FAERS Safety Report 6767325-6 (Version None)
Quarter: 2010Q2

REPORT INFORMATION
  Report Type: 
  Country: None (occurrence: None)
  Receive Date: 20100614
  Receipt Date: 20100603
  Transmission Date: 20101027
  Serious: Yes (Hospitalization)
  Sender: FDA-Public Use
  Company Number: SE-ASTRAZENECA-2010SE25584

PATIENT
  Sex: Female

DRUGS (3)
  1. NEXIUM [Suspect]
     Indication: GASTRIC ULCER
     Route: 048
     Dates: start: 20100521
  2. AMOXICILLIN [Suspect]
     Indication: GASTRIC ULCER
     Route: 048
     Dates: start: 20100521
  3. CLARITHROMYCIN [Suspect]
     Indication: GASTRIC ULCER
     Route: 048
     Dates: start: 20100521

REACTIONS (8)
  - BURNING SENSATION [None]
  - DYSPNOEA [None]
  - HEART RATE DECREASED [None]
  - HYPOAESTHESIA [None]
  - PARAESTHESIA [None]
  - RASH [None]
  - THROMBOSIS [None]
  - VOMITING [None]
